FAERS Safety Report 9036555 (Version 1)
Quarter: 2013Q1

REPORT INFORMATION
  Report Type: Report from Study
  Country: US (occurrence: US)
  Receive Date: 20130129
  Receipt Date: 20130129
  Transmission Date: 20140127
  Serious: No
  Sender: FDA-Public Use
  Company Number: US-ABBOTT-12P-163-0899525-00

PATIENT
  Age: 59 Year
  Sex: Male

DRUGS (6)
  1. HUMIRA 40 MG/0.8 ML PEN [Suspect]
     Indication: CROHN^S DISEASE
     Dosage: (LOADING DOSE 160MG)
     Dates: start: 20120127
  2. AZATHIOPRINE [Concomitant]
     Indication: PRODUCT USED FOR UNKNOWN INDICATION
  3. ZYRTEC [Concomitant]
     Indication: SINUS CONGESTION
  4. VIT D [Concomitant]
     Indication: PRODUCT USED FOR UNKNOWN INDICATION
  5. TUMS ULTRA 2 [Concomitant]
     Indication: PRODUCT USED FOR UNKNOWN INDICATION
  6. CENTRUM SILVER [Concomitant]
     Indication: PRODUCT USED FOR UNKNOWN INDICATION

REACTIONS (2)
  - Pain [Recovering/Resolving]
  - Fatigue [Unknown]
